FAERS Safety Report 25204088 (Version 2)
Quarter: 2025Q2

REPORT INFORMATION
  Report Type: Spontaneous
  Country: IT (occurrence: IT)
  Receive Date: 20250416
  Receipt Date: 20250523
  Transmission Date: 20250716
  Serious: Yes (Other)
  Sender: MERCK SHARP & DOHME LLC
  Company Number: IT-009507513-2275833

PATIENT
  Age: 69 Year
  Sex: Female

DRUGS (5)
  1. PEMBROLIZUMAB [Suspect]
     Active Substance: PEMBROLIZUMAB
     Indication: Refractory cancer
     Dates: start: 202106, end: 202201
  2. SOTORASIB [Suspect]
     Active Substance: SOTORASIB
     Indication: Lung adenocarcinoma stage III
     Dates: start: 202202
  3. SOTORASIB [Suspect]
     Active Substance: SOTORASIB
     Indication: Lung adenocarcinoma stage III
     Dates: start: 202204
  4. CARBOPLATIN [Concomitant]
     Active Substance: CARBOPLATIN
     Indication: Refractory cancer
     Dates: start: 202106, end: 202201
  5. PEMETREXED [Concomitant]
     Active Substance: PEMETREXED
     Indication: Lung adenocarcinoma stage III
     Dates: start: 202106, end: 202201

REACTIONS (1)
  - Hepatotoxicity [Recovered/Resolved]

NARRATIVE: CASE EVENT DATE: 20220401
